FAERS Safety Report 4473290-7 (Version None)
Quarter: 2004Q4

REPORT INFORMATION
  Report Type: 
  Country: None (occurrence: None)
  Receive Date: 20041013
  Receipt Date: 20041005
  Transmission Date: 20050328
  Serious: Yes (Other)
  Sender: FDA-Public Use
  Company Number: PHNU2004DE03435

PATIENT
  Sex: Female

DRUGS (2)
  1. DIOVAN [Suspect]
     Indication: HYPERTENSION
     Dosage: .5 DF, QD
     Route: 048
     Dates: start: 20040101
  2. BISOPROLOL FUMARATE [Concomitant]
     Dosage: .5 DF, QD
     Dates: start: 20040101

REACTIONS (7)
  - BLOOD PRESSURE FLUCTUATION [None]
  - DIZZINESS [None]
  - HEADACHE [None]
  - HEPATIC ENZYME INCREASED [None]
  - HYPERTENSION [None]
  - LIVER DISORDER [None]
  - SYNCOPE [None]
